FAERS Safety Report 4731912-7 (Version None)
Quarter: 2005Q3

REPORT INFORMATION
  Report Type: 
  Country: None (occurrence: None)
  Receive Date: 20050725
  Receipt Date: 20041109
  Transmission Date: 20060218
  Serious: Yes (Life-Threatening, Disabling)
  Sender: FDA-Public Use
  Company Number: WAES 0411USA01721

PATIENT
  Age: 61 Year
  Sex: Female

DRUGS (3)
  1. VIOXX [Suspect]
     Indication: PLANTAR FASCIITIS
     Dosage: PO
     Route: 048
     Dates: end: 20040401
  2. VIOXX [Suspect]
     Indication: PROCEDURAL PAIN
     Dosage: PO
     Route: 048
     Dates: end: 20040401
  3. SYNTHROID [Concomitant]

REACTIONS (1)
  - HYPERTENSION [None]
